FAERS Safety Report 9216985 (Version 1)
Quarter: 2013Q2

REPORT INFORMATION
  Report Type: Spontaneous
  Country: US (occurrence: US)
  Receive Date: 20130408
  Receipt Date: 20130408
  Transmission Date: 20140414
  Serious: Yes (Hospitalization, Other)
  Sender: FDA-Public Use
  Company Number: US-PFIZER INC-2013109023

PATIENT
  Age: 67 Year
  Sex: Female
  Weight: 79.8 kg

DRUGS (2)
  1. NEURONTIN [Suspect]
     Indication: NEURALGIA
     Dosage: 300 MG, 3X/DAY
  2. PERCOCET [Concomitant]
     Indication: PAIN
     Dosage: UNK

REACTIONS (6)
  - Cerebrovascular accident [Unknown]
  - Blood pressure increased [Unknown]
  - Joint swelling [Unknown]
  - Hypoaesthesia [Unknown]
  - Therapeutic response unexpected [Unknown]
  - Weight increased [Unknown]
